FAERS Safety Report 14800337 (Version 1)
Quarter: 2018Q2

REPORT INFORMATION
  Report Type: Spontaneous
  Country: US (occurrence: US)
  Receive Date: 20180424
  Receipt Date: 20180424
  Transmission Date: 20180711
  Serious: Yes (Other)
  Sender: FDA-Public Use
  Company Number: US-JAZZ-2018-US-005873

PATIENT
  Age: 51 Year
  Sex: Female

DRUGS (5)
  1. PARACETAMOL [Concomitant]
     Active Substance: ACETAMINOPHEN
     Indication: PRODUCT USED FOR UNKNOWN INDICATION
     Dosage: UNK
     Dates: start: 20171009, end: 20171027
  2. CHLORZOXAZONE. [Concomitant]
     Active Substance: CHLORZOXAZONE
     Indication: PRODUCT USED FOR UNKNOWN INDICATION
     Dosage: UNK
     Dates: start: 20160628, end: 20160727
  3. HYDROMORPHONE [Suspect]
     Active Substance: HYDROMORPHONE
     Indication: SPINAL PAIN
     Dosage: 5.71 ?G, QH
     Route: 037
     Dates: start: 2017, end: 2018
  4. PRIALT [Suspect]
     Active Substance: ZICONOTIDE ACETATE
     Indication: SPINAL PAIN
     Dosage: 0.04 ?G, QH
     Route: 037
     Dates: start: 2017, end: 2018
  5. NORCO [Concomitant]
     Active Substance: ACETAMINOPHEN\HYDROCODONE BITARTRATE
     Indication: PRODUCT USED FOR UNKNOWN INDICATION
     Dosage: UNK
     Dates: start: 20171027, end: 20171118

REACTIONS (15)
  - Pain in extremity [Unknown]
  - Hyperparathyroidism [Unknown]
  - Pain [Unknown]
  - Post laminectomy syndrome [Unknown]
  - Arthralgia [Unknown]
  - Headache [Unknown]
  - Thoracic vertebral fracture [Unknown]
  - Lumbosacral radiculopathy [Unknown]
  - Sacroiliitis [Unknown]
  - Abdominal pain [Not Recovered/Not Resolved]
  - Diarrhoea [Not Recovered/Not Resolved]
  - Nausea [Unknown]
  - Drug hypersensitivity [Unknown]
  - Vomiting [Unknown]
  - Device issue [Unknown]

NARRATIVE: CASE EVENT DATE: 201712
